FAERS Safety Report 9286252 (Version 3)
Quarter: 2013Q2

REPORT INFORMATION
  Report Type: Spontaneous
  Country: JP (occurrence: JP)
  Receive Date: 20130513
  Receipt Date: 20130529
  Transmission Date: 20140414
  Serious: Yes (Life-Threatening, Hospitalization)
  Sender: FDA-Public Use
  Company Number: JP-GLAXOSMITHKLINE-B0890809A

PATIENT
  Age: 23 Year
  Sex: Female

DRUGS (2)
  1. LAMICTAL [Suspect]
     Indication: EPILEPSY
     Dosage: 25MG ALTERNATE DAYS
     Route: 048
     Dates: start: 20130417, end: 20130426
  2. DEPAKENE-R [Concomitant]
     Indication: EPILEPSY
     Route: 048

REACTIONS (11)
  - Histiocytosis haematophagic [Recovered/Resolved]
  - Disseminated intravascular coagulation [Recovering/Resolving]
  - Pyrexia [Recovering/Resolving]
  - Generalised erythema [Recovering/Resolving]
  - Hepatic function abnormal [Unknown]
  - Liver disorder [Recovering/Resolving]
  - Drug eruption [Recovered/Resolved]
  - Rash [Unknown]
  - Platelet count decreased [Unknown]
  - Rash [Recovering/Resolving]
  - Hepatic function abnormal [Unknown]
